FAERS Safety Report 5762294-X (Version None)
Quarter: 2008Q2

REPORT INFORMATION
  Report Type: 
  Country: None (occurrence: None)
  Receive Date: 20080609
  Receipt Date: 20080530
  Transmission Date: 20081010
  Serious: Yes (Hospitalization)
  Sender: FDA-Public Use
  Company Number: US-JNJFOC-20061204680

PATIENT
  Sex: Female
  Weight: 54.89 kg

DRUGS (7)
  1. ORTHO EVRA [Suspect]
     Indication: CONTRACEPTION
     Route: 062
  2. PREDNISONE TAB [Concomitant]
  3. FOLIC ACID [Concomitant]
  4. IMURAN [Concomitant]
  5. IRON [Concomitant]
  6. POTASSIUM CHLORIDE [Concomitant]
  7. VITAMIN TAB [Concomitant]

REACTIONS (2)
  - COLITIS ULCERATIVE [None]
  - PULMONARY EMBOLISM [None]
